FAERS Safety Report 8764024 (Version 2)
Quarter: 2012Q4

REPORT INFORMATION
  Report Type: 
  Country: RU (occurrence: RU)
  Receive Date: 20120831
  Receipt Date: 20121010
  Transmission Date: 20130627
  Serious: Yes (Hospitalization)
  Sender: FDA-Public Use
  Company Number: RU-RANBAXY-2012RR-59536

PATIENT
  Age: 63 Year
  Sex: Female
  Weight: 82 kg

DRUGS (10)
  1. CIFRAN [Suspect]
     Indication: PNEUMONIA
     Dosage: used for 3-5 days at the maximum daily dose
     Route: 065
  2. CEFOTAXIME [Suspect]
     Indication: PNEUMONIA
     Dosage: used for 3-5 days at the maximum daily dose
     Route: 065
  3. METRONIDAZOLE [Suspect]
     Indication: PNEUMONIA
     Dosage: used for 3-5 days at the maximum daily dose
     Route: 065
  4. AMOXICLAV [Suspect]
     Indication: PNEUMONIA
     Dosage: 1.2 g, tid
     Route: 040
  5. SUMAMED [Suspect]
     Indication: PNEUMONIA
     Dosage: sed for 3-5 days at the maximum daily dose
     Route: 065
  6. ENALAPRIL [Concomitant]
     Indication: HYPERTENSION
     Dosage: 5 mg, bid
     Route: 065
  7. MILDRONAT [Concomitant]
     Indication: PRODUCT USED FOR UNKNOWN INDICATION
     Dosage: 5 ml, 10%
     Route: 065
  8. ANALGIN [Concomitant]
     Indication: PRODUCT USED FOR UNKNOWN INDICATION
     Dosage: 2 ml, 50% in sodium chloride solution 200 ml/day, 0.9 %
     Route: 042
  9. DICLOFENAC [Concomitant]
     Indication: PRODUCT USED FOR UNKNOWN INDICATION
     Dosage: 25 mg, tid
     Route: 065
  10. DIFLUKAN [Concomitant]
     Indication: PRODUCT USED FOR UNKNOWN INDICATION
     Dosage: 400 mg, tid
     Route: 065

REACTIONS (4)
  - Alveolitis allergic [Recovering/Resolving]
  - Pulmonary fibrosis [Recovering/Resolving]
  - Acute respiratory failure [Recovering/Resolving]
  - Pleurisy [Recovering/Resolving]
